FAERS Safety Report 7075186-3 (Version None)
Quarter: 2010Q4

REPORT INFORMATION
  Report Type: 
  Country: None (occurrence: None)
  Receive Date: 20101029
  Receipt Date: 20100514
  Transmission Date: 20110411
  Serious: No
  Sender: FDA-Public Use
  Company Number: US-WYE-H15210110

PATIENT
  Age: 78 Year
  Sex: Female
  Weight: 72.64 kg

DRUGS (3)
  1. ADVIL PM [Suspect]
     Indication: INSOMNIA
     Dosage: 2 CAPLETS PER DAY
     Route: 048
     Dates: start: 20100503
  2. ACETYLSALICYLIC ACID SRT [Concomitant]
  3. VALIUM [Concomitant]

REACTIONS (1)
  - DYSURIA [None]
